FAERS Safety Report 24976909 (Version 1)
Quarter: 2025Q1

REPORT INFORMATION
  Report Type: Report from Study
  Country: IN (occurrence: IN)
  Receive Date: 20250217
  Receipt Date: 20250217
  Transmission Date: 20250409
  Serious: Yes (Other)
  Sender: PFIZER
  Company Number: IN-TAKEDA-2023TUS104568

PATIENT
  Age: 48 Year
  Sex: Male

DRUGS (2)
  1. ADCETRIS [Suspect]
     Active Substance: BRENTUXIMAB VEDOTIN
     Indication: Hodgkin^s disease
     Route: 042
  2. ADCETRIS [Suspect]
     Active Substance: BRENTUXIMAB VEDOTIN
     Route: 042
     Dates: start: 20230719

REACTIONS (5)
  - Hyperhidrosis [Unknown]
  - Weight decreased [Unknown]
  - Pyrexia [Unknown]
  - Hypoaesthesia [Unknown]
  - Alopecia [Unknown]
